FAERS Safety Report 6438288-8 (Version None)
Quarter: 2009Q4

REPORT INFORMATION
  Report Type: 
  Country: None (occurrence: None)
  Receive Date: 20091112
  Receipt Date: 20091105
  Transmission Date: 20100525
  Serious: Yes (Other)
  Sender: FDA-Public Use
  Company Number: DE-JNJFOC-20091101812

PATIENT
  Age: 19 Year
  Sex: Male

DRUGS (1)
  1. TOPAMAX [Suspect]
     Indication: PARTIAL SEIZURES
     Route: 048

REACTIONS (1)
  - HYPERINSULINAEMIA [None]
